FAERS Safety Report 14794176 (Version 9)
Quarter: 2019Q4

REPORT INFORMATION
  Report Type: Report from Study
  Country: ES (occurrence: ES)
  Receive Date: 20180423
  Receipt Date: 20191001
  Transmission Date: 20200122
  Serious: Yes (Hospitalization)
  Sender: FDA-Public Use
  Company Number: PHHO2018ES002647

PATIENT
  Age: 84 Year
  Sex: Female
  Weight: 76 kg

DRUGS (18)
  1. PLACEBO [Suspect]
     Active Substance: UNSPECIFIED INGREDIENT
     Indication: CARDIAC FAILURE
     Dosage: UNK
     Route: 048
     Dates: start: 20161228, end: 20180212
  2. FUROSEMIDE. [Concomitant]
     Active Substance: FUROSEMIDE
     Dosage: 20 MG, TID
     Dates: start: 20180213
  3. ENOXAPARIN [Concomitant]
     Active Substance: ENOXAPARIN
     Indication: THROMBOSIS PROPHYLAXIS
     Dosage: 40 MG, QD
     Route: 058
     Dates: start: 20170906, end: 20170910
  4. LORMETAZEPAM [Concomitant]
     Active Substance: LORMETAZEPAM
     Indication: PROPHYLAXIS
     Dosage: 1 MG, QD
     Route: 048
     Dates: start: 20141123, end: 20170910
  5. OMEPRAZOLE. [Concomitant]
     Active Substance: OMEPRAZOLE
     Indication: PROPHYLAXIS
     Dosage: 20 MG, QD
     Route: 048
     Dates: start: 20141123
  6. VALSARTAN. [Suspect]
     Active Substance: VALSARTAN
     Indication: CARDIAC FAILURE
     Dosage: 160 MG, BID
     Route: 048
     Dates: start: 20161228, end: 20180212
  7. ENOXAPARIN [Concomitant]
     Active Substance: ENOXAPARIN
     Dosage: 5 MG, QD
     Route: 058
  8. BISOPROLOL [Suspect]
     Active Substance: BISOPROLOL
     Indication: CARDIAC FAILURE
     Dosage: 2.5 MG, QD
     Route: 048
     Dates: start: 20160601
  9. FUROSEMIDE. [Concomitant]
     Active Substance: FUROSEMIDE
     Dosage: 40 MG, QD (QAD)
  10. BISOPROLOL [Suspect]
     Active Substance: BISOPROLOL
     Dosage: 2.5 MG, QD
     Route: 048
  11. EMCONCOR [Suspect]
     Active Substance: BISOPROLOL FUMARATE
     Dosage: 2.5 MG, QD
     Route: 048
  12. LORMETAZEPAM [Concomitant]
     Active Substance: LORMETAZEPAM
     Dosage: 1 MG, QD
     Route: 048
  13. AMLODIPINE [Concomitant]
     Active Substance: AMLODIPINE BESYLATE
     Indication: HYPERTENSION
     Dosage: 5 MG/OAD
     Route: 065
     Dates: start: 20170920
  14. SIMVASTATIN. [Concomitant]
     Active Substance: SIMVASTATIN
     Indication: DYSLIPIDAEMIA
     Dosage: 20 MG, QD
     Route: 048
     Dates: start: 20160524
  15. CALCIUM [Concomitant]
     Active Substance: CALCIUM
     Indication: PRODUCT USED FOR UNKNOWN INDICATION
     Dosage: UNK
     Route: 065
  16. EMCONCOR [Suspect]
     Active Substance: BISOPROLOL FUMARATE
     Indication: CARDIAC FAILURE
     Dosage: 2.5 MG, QD
     Route: 048
     Dates: start: 20160601
  17. FUROSEMIDE. [Concomitant]
     Active Substance: FUROSEMIDE
     Indication: CARDIAC FAILURE
     Dosage: 40 MG, QD
     Route: 048
     Dates: start: 20170920
  18. FERROUS SULFATE. [Concomitant]
     Active Substance: FERROUS SULFATE
     Indication: ANAEMIA
     Dosage: 256 MG, QD
     Route: 048
     Dates: start: 20170906, end: 20170910

REACTIONS (6)
  - Bradycardia [Recovered/Resolved]
  - Cardiac failure [Recovered/Resolved]
  - Renal failure [Recovered/Resolved]
  - Urinary tract infection [Recovered/Resolved]
  - Hyponatraemia [Recovered/Resolved]
  - Hyperkalaemia [Recovered/Resolved]

NARRATIVE: CASE EVENT DATE: 20180213
